FAERS Safety Report 17184728 (Version 1)
Quarter: 2019Q4

REPORT INFORMATION
  Report Type: Report from Study
  Country: US (occurrence: US)
  Receive Date: 20191220
  Receipt Date: 20191220
  Transmission Date: 20200122
  Serious: Yes (Hospitalization)
  Sender: FDA-Public Use
  Company Number: US-EISAI MEDICAL RESEARCH-EC-2019-061105

PATIENT
  Age: 53 Year
  Sex: Male
  Weight: 67 kg

DRUGS (1)
  1. LENVIMA [Suspect]
     Active Substance: LENVATINIB
     Indication: HEPATOCELLULAR CARCINOMA
     Route: 048
     Dates: start: 20190815, end: 201911

REACTIONS (22)
  - Bone pain [Not Recovered/Not Resolved]
  - Decreased appetite [Recovering/Resolving]
  - Haematochezia [Recovered/Resolved]
  - Hepatic enzyme increased [Recovering/Resolving]
  - Dry mouth [Not Recovered/Not Resolved]
  - Hypersomnia [Not Recovered/Not Resolved]
  - Constipation [Recovered/Resolved]
  - Back pain [Not Recovered/Not Resolved]
  - Gastrointestinal motility disorder [Not Recovered/Not Resolved]
  - Asthenia [Not Recovered/Not Resolved]
  - Insomnia [Recovered/Resolved]
  - Pain in extremity [Not Recovered/Not Resolved]
  - Glossodynia [Not Recovered/Not Resolved]
  - Oral pain [Not Recovered/Not Resolved]
  - Palmar-plantar erythrodysaesthesia syndrome [Recovering/Resolving]
  - Pain [Not Recovered/Not Resolved]
  - Fatigue [Recovering/Resolving]
  - Diarrhoea [Not Recovered/Not Resolved]
  - Blood pressure increased [Not Recovered/Not Resolved]
  - Dizziness [Recovered/Resolved]
  - Weight decreased [Recovered/Resolved]
  - Dyschezia [Recovered/Resolved]

NARRATIVE: CASE EVENT DATE: 201908
